FAERS Safety Report 17148435 (Version 10)
Quarter: 2021Q1

REPORT INFORMATION
  Report Type: Report from Study
  Country: NL (occurrence: NL)
  Receive Date: 20191212
  Receipt Date: 20210128
  Transmission Date: 20210419
  Serious: Yes (Other)
  Sender: FDA-Public Use
  Company Number: NL-INCYTE CORPORATION-2018IN012502

PATIENT

DRUGS (16)
  1. JAKAVI [Suspect]
     Active Substance: RUXOLITINIB
     Dosage: 20 UNK
     Route: 048
     Dates: start: 20180410, end: 20180711
  2. ACETYLSALICYLZUUR [Concomitant]
     Active Substance: ASPIRIN
     Indication: PRODUCT USED FOR UNKNOWN INDICATION
     Dosage: 1 DF, QD
     Route: 065
     Dates: start: 20180601
  3. METOPROLOL. [Concomitant]
     Active Substance: METOPROLOL
     Indication: PRODUCT USED FOR UNKNOWN INDICATION
     Dosage: 1 DF, QD
     Route: 065
     Dates: start: 20030805
  4. AMLODIPINE [Concomitant]
     Active Substance: AMLODIPINE BESYLATE
     Indication: PRODUCT USED FOR UNKNOWN INDICATION
     Dosage: 1 DF, QD
     Route: 065
     Dates: start: 20150416
  5. ESOMEPRAZOLE. [Concomitant]
     Active Substance: ESOMEPRAZOLE MAGNESIUM
     Dosage: 40 UNK
     Route: 065
     Dates: start: 20140212, end: 20190328
  6. JAKAVI [Suspect]
     Active Substance: RUXOLITINIB
     Dosage: 10 UNK
     Route: 048
     Dates: start: 20190228
  7. HYDROCHLOORTHIAZIDE [Concomitant]
     Active Substance: HYDROCHLOROTHIAZIDE
     Indication: HYPERTENSION
     Dosage: 12.5 OT
     Route: 065
     Dates: start: 20140212
  8. JAKAVI [Suspect]
     Active Substance: RUXOLITINIB
     Dosage: 20 UNK
     Route: 048
     Dates: start: 20190131, end: 20190227
  9. GLICLAZIDE [Concomitant]
     Active Substance: GLICLAZIDE
     Indication: PRODUCT USED FOR UNKNOWN INDICATION
     Dosage: 1 DF, QD
     Route: 065
     Dates: start: 20141113
  10. ESOMEPRAZOLE. [Concomitant]
     Active Substance: ESOMEPRAZOLE MAGNESIUM
     Indication: PRODUCT USED FOR UNKNOWN INDICATION
     Dosage: 1 DF, QD
     Route: 065
     Dates: start: 20121107
  11. JAKAVI [Suspect]
     Active Substance: RUXOLITINIB
     Indication: POLYCYTHAEMIA VERA
     Dosage: 10 UNK
     Route: 048
     Dates: start: 20180313, end: 20180410
  12. CARBASALATE CALCIUM [Concomitant]
     Active Substance: CARBASPIRIN CALCIUM
     Indication: PRODUCT USED FOR UNKNOWN INDICATION
     Dosage: 1 DF, QD
     Route: 065
  13. METFORMIN [Concomitant]
     Active Substance: METFORMIN HYDROCHLORIDE
     Indication: PRODUCT USED FOR UNKNOWN INDICATION
     Dosage: 1 DF, QOD
     Route: 065
     Dates: start: 20110808
  14. JAKAVI [Suspect]
     Active Substance: RUXOLITINIB
     Dosage: 10 UNK
     Route: 048
     Dates: start: 20180712, end: 20190130
  15. NITROGLYCERIN. [Concomitant]
     Active Substance: NITROGLYCERIN
     Indication: PRODUCT USED FOR UNKNOWN INDICATION
     Dosage: 0.4 MG/DO FL 200DO,1, GB
     Route: 060
     Dates: start: 20180919
  16. LISINOPRIL. [Concomitant]
     Active Substance: LISINOPRIL
     Indication: PRODUCT USED FOR UNKNOWN INDICATION
     Dosage: 1 DF, QD
     Route: 065
     Dates: start: 20030313

REACTIONS (9)
  - Fatigue [Not Recovered/Not Resolved]
  - Basal cell carcinoma [Unknown]
  - Squamous cell carcinoma [Recovered/Resolved]
  - Nausea [Recovered/Resolved]
  - Anaemia [Not Recovered/Not Resolved]
  - Dementia [Not Recovered/Not Resolved]
  - Diarrhoea [Recovered/Resolved]
  - Second primary malignancy [Recovered/Resolved]
  - Myelofibrosis [Not Recovered/Not Resolved]

NARRATIVE: CASE EVENT DATE: 20180313
